FAERS Safety Report 9704998 (Version 1)
Quarter: 2013Q4

REPORT INFORMATION
  Report Type: Spontaneous
  Country: US (occurrence: US)
  Receive Date: 20131122
  Receipt Date: 20131122
  Transmission Date: 20140711
  Serious: No
  Sender: FDA-Public Use
  Company Number: US-ABBVIE-13P-163-1136537-00

PATIENT
  Age: 47 Year
  Sex: Male
  Weight: 68.1 kg

DRUGS (2)
  1. ANDROGEL [Suspect]
     Indication: BLOOD TESTOSTERONE DECREASED
     Dosage: 2 PUMPS
     Route: 061
     Dates: start: 20130727
  2. CARBERGOLINE [Concomitant]
     Indication: PITUITARY TUMOUR

REACTIONS (2)
  - Blood testosterone decreased [Not Recovered/Not Resolved]
  - Drug administration error [Not Recovered/Not Resolved]
